FAERS Safety Report 6795630-6 (Version None)
Quarter: 2010Q2

REPORT INFORMATION
  Report Type: 
  Country: None (occurrence: None)
  Receive Date: 20100625
  Receipt Date: 20100617
  Transmission Date: 20101027
  Serious: Yes (Life-Threatening, Other)
  Sender: FDA-Public Use
  Company Number: JP-MERCK-1006USA01730

PATIENT
  Age: 77 Year
  Sex: Male
  Weight: 62 kg

DRUGS (8)
  1. JANUVIA [Suspect]
     Indication: DIABETES MELLITUS
     Route: 048
     Dates: start: 20100525
  2. AMARYL [Suspect]
     Indication: DIABETES MELLITUS
     Route: 048
     Dates: start: 20100512, end: 20100525
  3. AMARYL [Suspect]
     Route: 048
     Dates: start: 20100525
  4. ACTOS [Suspect]
     Indication: DIABETES MELLITUS
     Route: 048
     Dates: start: 20040625
  5. MICARDIS [Concomitant]
     Indication: HYPERTENSION
     Route: 048
     Dates: start: 20061005
  6. ATELEC [Concomitant]
     Indication: HYPERTENSION
     Route: 048
     Dates: start: 20061006
  7. GLYCORAN [Suspect]
     Indication: DIABETES MELLITUS
     Route: 048
     Dates: start: 20040310
  8. GLUCOBAY [Suspect]
     Indication: DIABETES MELLITUS
     Route: 048
     Dates: start: 20100312

REACTIONS (2)
  - FEMUR FRACTURE [None]
  - HYPOGLYCAEMIA [None]
